FAERS Safety Report 9191225 (Version 6)
Quarter: 2016Q1

REPORT INFORMATION
  Report Type: Report from Study
  Country: US (occurrence: US)
  Receive Date: 20130326
  Receipt Date: 20160316
  Transmission Date: 20160526
  Serious: Yes (Other)
  Sender: FDA-Public Use
  Company Number: US-UCBSA-081245

PATIENT
  Age: 27 Year
  Sex: Female

DRUGS (24)
  1. LEVETIRACETAM. [Suspect]
     Active Substance: LEVETIRACETAM
     Indication: EPILEPSY
     Dosage: 1500 MG
     Dates: end: 20120911
  2. NEURONTIN [Concomitant]
     Active Substance: GABAPENTIN
     Indication: EPILEPSY
  3. DHA [Concomitant]
     Active Substance: DIETARY SUPPLEMENT
     Indication: PRODUCT USED FOR UNKNOWN INDICATION
     Dosage: ONE DOSE
     Dates: start: 20120725
  4. PRENATAL VITAMINS [Concomitant]
     Active Substance: VITAMINS
     Indication: PRODUCT USED FOR UNKNOWN INDICATION
  5. TEGRETOL [Concomitant]
     Active Substance: CARBAMAZEPINE
     Indication: EPILEPSY
  6. CLOZARIL [Concomitant]
     Active Substance: CLOZAPINE
     Indication: EPILEPSY
  7. ZYRTEC [Concomitant]
     Active Substance: CETIRIZINE HYDROCHLORIDE
     Indication: PRODUCT USED FOR UNKNOWN INDICATION
     Dosage: STRENGTH: 10MG
  8. PROZAC [Concomitant]
     Active Substance: FLUOXETINE HYDROCHLORIDE
     Indication: ANXIETY
     Dosage: 40 MG, ONCE DAILY (QD)
  9. KLONOPIN [Concomitant]
     Active Substance: CLONAZEPAM
     Indication: EPILEPSY
  10. LEVETIRACETAM. [Suspect]
     Active Substance: LEVETIRACETAM
     Dosage: DAILY DOSE - 2000 MG
     Dates: start: 20120911
  11. VALIUM [Concomitant]
     Active Substance: DIAZEPAM
     Indication: EPILEPSY
  12. DILANTIN [Concomitant]
     Active Substance: PHENYTOIN
     Indication: EPILEPSY
     Dosage: 200MG QD ALTERNATING DOSE OF 300 QD
  13. TRIDIONE [Concomitant]
     Active Substance: TRIMETHADIONE
     Indication: EPILEPSY
  14. FOLBIC [Concomitant]
     Active Substance: CYANOCOBALAMIN\FOLIC ACID\PYRIDOXINE
     Indication: PREGNANCY
     Dosage: 4 MG, ONCE DAILY (QD)
     Route: 048
     Dates: start: 20120229
  15. PROZAC [Concomitant]
     Active Substance: FLUOXETINE HYDROCHLORIDE
     Dosage: 10 MG, ONCE DAILY (QD)
     Route: 048
  16. DEPAKOTE [Concomitant]
     Active Substance: DIVALPROEX SODIUM
     Indication: EPILEPSY
  17. LAMICTAL [Concomitant]
     Active Substance: LAMOTRIGINE
     Indication: EPILEPSY
  18. TRILEPTAL [Concomitant]
     Active Substance: OXCARBAZEPINE
     Indication: EPILEPSY
  19. CONCERTA [Concomitant]
     Active Substance: METHYLPHENIDATE HYDROCHLORIDE
     Indication: PRODUCT USED FOR UNKNOWN INDICATION
     Dosage: STRENGTH: 36MG
  20. TOPAMAX [Concomitant]
     Active Substance: TOPIRAMATE
     Indication: EPILEPSY
  21. ADVIL [Concomitant]
     Active Substance: IBUPROFEN
     Indication: MUSCLE SPASMS
  22. LEVETIRACETAM. [Suspect]
     Active Substance: LEVETIRACETAM
     Dosage: DAILY DOSE: 2500 MG, EVERY BEDTIME
     Dates: start: 2013
  23. CALCIUM [Concomitant]
     Active Substance: CALCIUM
     Indication: PRODUCT USED FOR UNKNOWN INDICATION
     Dosage: UNK UNK, ONCE DAILY (QD)
     Route: 048
     Dates: start: 20120725
  24. PHENOBARBITAL. [Concomitant]
     Active Substance: PHENOBARBITAL
     Indication: EPILEPSY

REACTIONS (5)
  - Pregnancy [Recovered/Resolved]
  - Blepharospasm [Unknown]
  - Stress [Unknown]
  - Polymorphic eruption of pregnancy [Unknown]
  - Breech presentation [Recovered/Resolved]

NARRATIVE: CASE EVENT DATE: 2012
